FAERS Safety Report 12297270 (Version 1)
Quarter: 2016Q2

REPORT INFORMATION
  Report Type: Spontaneous
  Country: US (occurrence: US)
  Receive Date: 20160422
  Receipt Date: 20160422
  Transmission Date: 20160815
  Serious: Yes (Hospitalization, Other)
  Sender: FDA-Public Use
  Company Number: US-TEVA-653854USA

PATIENT
  Sex: Female

DRUGS (1)
  1. LEVALBUTEROL. [Suspect]
     Active Substance: LEVALBUTEROL
     Dosage: 1.25 MG/ 3 ML

REACTIONS (8)
  - Choking [Unknown]
  - Cough [Unknown]
  - Decreased appetite [Unknown]
  - Asthenia [Unknown]
  - Haemoptysis [Unknown]
  - Drug ineffective [Unknown]
  - Injury [Unknown]
  - Hospitalisation [Recovered/Resolved]
